FAERS Safety Report 6751533-4 (Version None)
Quarter: 2010Q2

REPORT INFORMATION
  Report Type: 
  Country: None (occurrence: None)
  Receive Date: 20100602
  Receipt Date: 20100519
  Transmission Date: 20101027
  Serious: Yes (Other)
  Sender: FDA-Public Use
  Company Number: JP-ROCHE-705365

PATIENT
  Age: 17 Year
  Sex: Female

DRUGS (4)
  1. VESANOID [Suspect]
     Indication: ACUTE PROMYELOCYTIC LEUKAEMIA
     Dosage: NOTE: DOSAGE IS UNCERTAIN.
     Route: 048
  2. IDAMYCIN [Suspect]
     Indication: ACUTE PROMYELOCYTIC LEUKAEMIA
     Dosage: NOTE: DOSAGE IS UNCERTAIN.
     Route: 042
  3. CYTARABINE [Suspect]
     Indication: ACUTE PROMYELOCYTIC LEUKAEMIA
     Route: 065
  4. VANCOMYCIN HYDROCHLORIDE [Suspect]
     Indication: ACUTE PROMYELOCYTIC LEUKAEMIA
     Dosage: NOTE: DOSAGE IS UNCERTAIN.
     Route: 042

REACTIONS (6)
  - HAEMORRHAGE INTRACRANIAL [None]
  - HISTIOCYTOSIS HAEMATOPHAGIC [None]
  - PULMONARY ALVEOLAR HAEMORRHAGE [None]
  - RASH GENERALISED [None]
  - RETINOIC ACID SYNDROME [None]
  - SEPSIS [None]
